FAERS Safety Report 14169540 (Version 1)
Quarter: 2017Q4

REPORT INFORMATION
  Report Type: Spontaneous
  Country: IE (occurrence: IE)
  Receive Date: 20171108
  Receipt Date: 20171108
  Transmission Date: 20180321
  Serious: Yes (Other)
  Sender: FDA-Public Use
  Company Number: IE-AMGEN-IRLSP2017139616

PATIENT
  Age: 47 Year
  Sex: Male
  Weight: 95 kg

DRUGS (4)
  1. ENBREL [Suspect]
     Active Substance: ETANERCEPT
     Indication: ANKYLOSING SPONDYLITIS
     Dosage: 50 MG, WEEKLY
     Route: 058
     Dates: start: 20170306
  2. DIFENE [Concomitant]
     Active Substance: DICLOFENAC SODIUM
     Indication: ANKYLOSING SPONDYLITIS
     Dosage: 75 MG, 2X/DAY
     Route: 048
     Dates: start: 20151009
  3. SOLPADEINE [Concomitant]
     Indication: ANKYLOSING SPONDYLITIS
     Dosage: 500/8 MG 2 TABLETS 4X/DAY
     Route: 048
     Dates: start: 20170111
  4. OMEPRAZOLE. [Concomitant]
     Active Substance: OMEPRAZOLE
     Indication: PROPHYLAXIS
     Dosage: 40 MG ONE TABLET 2X/DAY
     Route: 048
     Dates: start: 20151209

REACTIONS (5)
  - Injection site pain [Unknown]
  - Device issue [Recovering/Resolving]
  - Drug dose omission [Recovering/Resolving]
  - Injection site haemorrhage [Recovering/Resolving]
  - Condition aggravated [Recovering/Resolving]

NARRATIVE: CASE EVENT DATE: 201708
